FAERS Safety Report 9000881 (Version 1)
Quarter: 2012Q4

REPORT INFORMATION
  Report Type: 
  Country: GB (occurrence: None)
  Receive Date: 20121226
  Receipt Date: 20121226
  Transmission Date: 20130627
  Serious: Yes (Other)
  Sender: FDA-Public Use
  Company Number: AUR-APL-2012-05470

PATIENT
  Age: 80 Year
  Sex: Male
  Weight: 99.1 kg

DRUGS (18)
  1. SIMVASTATIN [Suspect]
     Indication: CHOLESTEROL HIGH
     Dosage: (40 mg, 1 in 1D)
     Dates: start: 20080317, end: 20080528
  2. PRAVASTATIN (PRAVASTATIN) [Suspect]
     Indication: CHOLESTEROL HIGH
     Dosage: (20 mg, 1 in 1D)
     Dates: start: 20080731, end: 20090316
  3. ACIDEX SUSPENSION [Concomitant]
  4. ASPIRIN (ACETYLSALICYLIC ACID) [Concomitant]
  5. BISOPROLOL (BISOPROLOL) [Concomitant]
  6. COENZYME Q10(UBIDECARENONE) [Concomitant]
  7. DIPROBASE(PARAFFIN) [Concomitant]
  8. FINASTERIDE(FINASTERIDE) [Concomitant]
  9. GLICLAZIDE(GLICLAZIDE) [Concomitant]
  10. ISPHAGULA HUSK(PLANTAGO OVATA HUSK) [Concomitant]
  11. METFORMIN(METFORMIN) [Concomitant]
  12. PREDNISOLONE(PREDNISOLONE) [Concomitant]
  13. SALMETEROL(SALMETEROL) [Concomitant]
  14. SENNA(SENNA ALEXANDRINA) [Concomitant]
  15. TIOTROPIUM BROMIDE(TIOTROPIUM BROMIDE) [Concomitant]
  16. VENTOLIN(SALBUTAMOL) [Concomitant]
  17. VITAMIN B3(NICOTINAMIDE) [Concomitant]
  18. ALENDRONIC ACID(ALENDRONIC ACID) [Concomitant]

REACTIONS (11)
  - Amnesia [None]
  - Cognitive disorder [None]
  - Muscular weakness [None]
  - Feeling abnormal [None]
  - Mobility decreased [None]
  - Pain in extremity [None]
  - Arthralgia [None]
  - Myalgia [None]
  - Fatigue [None]
  - Insomnia [None]
  - Hypoaesthesia [None]
